FAERS Safety Report 8947672 (Version 1)
Quarter: 2012Q4

REPORT INFORMATION
  Report Type: 
  Country: US (occurrence: US)
  Receive Date: 20121205
  Receipt Date: 20121205
  Transmission Date: 20130627
  Serious: Yes (Hospitalization)
  Sender: FDA-Public Use
  Company Number: US-BAYER-2012-127637

PATIENT
  Age: 61 Year
  Sex: Female

DRUGS (1)
  1. MAGNEVIST [Suspect]
     Indication: PELVIC MRI
     Dosage: 15 UNK, UNK
     Route: 042
     Dates: start: 20121204, end: 20121204

REACTIONS (4)
  - Swelling face [None]
  - Swelling [None]
  - Hypoaesthesia [None]
  - Hypoaesthesia [None]
